FAERS Safety Report 4355715-0 (Version None)
Quarter: 2004Q2

REPORT INFORMATION
  Report Type: 
  Country: None (occurrence: None)
  Receive Date: 20040510
  Receipt Date: 20040510
  Transmission Date: 20050107
  Serious: Yes (Disabling)
  Sender: FDA-Public Use
  Company Number: None

PATIENT
  Age: 31 Year
  Sex: Female
  Weight: 62.5964 kg

DRUGS (1)
  1. SEPTOCAINE [Suspect]
     Indication: ANAESTHESIA
     Dosage: DENTAL
     Route: 004
     Dates: start: 20040429, end: 20040429

REACTIONS (7)
  - DRY MOUTH [None]
  - DYSGEUSIA [None]
  - FEELING ABNORMAL [None]
  - GLOSSODYNIA [None]
  - HYPOAESTHESIA ORAL [None]
  - SENSORY DISTURBANCE [None]
  - THERMAL BURN [None]
